FAERS Safety Report 5875597-5 (Version None)
Quarter: 2008Q3

REPORT INFORMATION
  Report Type: 
  Country: None (occurrence: None)
  Receive Date: 20080909
  Receipt Date: 20080825
  Transmission Date: 20090109
  Serious: No
  Sender: FDA-Public Use
  Company Number: US-B.I. PHARMACEUTICALS,INC./RIDGEFIELD-2008-BP-13765BP

PATIENT
  Age: 81 Year
  Sex: Male

DRUGS (3)
  1. ZANTAC 150 [Suspect]
     Indication: DYSPEPSIA
     Dosage: 150MG
     Route: 048
     Dates: start: 20080824
  2. INDERAL [Concomitant]
  3. LASIX [Concomitant]

REACTIONS (1)
  - NAUSEA [None]
